FAERS Safety Report 6613211-1 (Version None)
Quarter: 2010Q2

REPORT INFORMATION
  Report Type: 
  Country: None (occurrence: None)
  Receive Date: 20100304
  Receipt Date: 20100219
  Transmission Date: 20101027
  Serious: Yes (Hospitalization)
  Sender: FDA-Public Use
  Company Number: US-JNJFOC-20100210356

PATIENT
  Age: 9 Month
  Sex: Male
  Weight: 9.7 kg

DRUGS (3)
  1. CONCENTRATED TYLENOL INFANT DROPS [Suspect]
     Indication: PYREXIA
     Route: 048
  2. CONCENTRATED TYLENOL INFANT DROPS [Suspect]
     Indication: OTITIS MEDIA
     Route: 048
  3. AMOXICILLIN PEDIATRIC [Suspect]
     Indication: OTITIS MEDIA
     Route: 048

REACTIONS (11)
  - ACCIDENTAL OVERDOSE [None]
  - ACIDOSIS [None]
  - COAGULOPATHY [None]
  - DIARRHOEA [None]
  - ELECTROLYTE IMBALANCE [None]
  - INCORRECT DRUG DOSAGE FORM ADMINISTERED [None]
  - IRRITABILITY [None]
  - LETHARGY [None]
  - LIVER FUNCTION TEST ABNORMAL [None]
  - PROTHROMBIN TIME PROLONGED [None]
  - SEPSIS [None]
